FAERS Safety Report 22046871 (Version 1)
Quarter: 2023Q1

REPORT INFORMATION
  Report Type: Spontaneous
  Country: US (occurrence: US)
  Receive Date: 20230228
  Receipt Date: 20230228
  Transmission Date: 20230417
  Serious: Yes (Other)
  Sender: FDA-Public Use
  Company Number: None

PATIENT
  Age: 61 Year
  Sex: Male
  Weight: 55.8 kg

DRUGS (23)
  1. GABAPENTIN [Suspect]
     Active Substance: GABAPENTIN
     Indication: Neuropathy peripheral
     Dosage: 100 MILLIGRAM/DAY (100 MG BY MOUTH DAILY FOR 1 DAY (DAY 0))
     Route: 048
  2. GABAPENTIN [Suspect]
     Active Substance: GABAPENTIN
     Dosage: 200 MILLIGRAM/DAY (200 MG BY MOUTH DAILY FOR 2 DAYS)
     Route: 048
  3. GABAPENTIN [Suspect]
     Active Substance: GABAPENTIN
     Dosage: 300 MILLIGRAM, AT BED TIME (300 MG/DAY BY MOUTH NIGHTLY)
     Route: 048
  4. GABAPENTIN [Suspect]
     Active Substance: GABAPENTIN
     Dosage: 300 MILLIGRAM/DAY
     Route: 048
  5. GABAPENTIN [Suspect]
     Active Substance: GABAPENTIN
     Dosage: UNK, BID (UPTITRATED TO 400 MG BY MOUTH TWICE DAILY)
     Route: 048
  6. GABAPENTIN [Suspect]
     Active Substance: GABAPENTIN
     Dosage: 400 MILLIGRAM, EVERY 12 HRS (UPTITRATED TO 400 MG BY MOUTH TWICE DAILY)
     Route: 048
  7. GABAPENTIN [Suspect]
     Active Substance: GABAPENTIN
     Dosage: 600 MILLIGRAM/DAY
     Route: 048
  8. GABAPENTIN [Suspect]
     Active Substance: GABAPENTIN
     Dosage: 1200 MILLIGRAM/DAY (300 MG AM/600 MG PM X 3 DAYS)
     Route: 048
  9. GABAPENTIN [Suspect]
     Active Substance: GABAPENTIN
     Dosage: 600 MILLIGRAM, EVERY 12 HRS (600 MG BY MOUTH TWICE DAILY OVER THE NEXT MONTH; 1200 MG/DAY)
     Route: 048
  10. GABAPENTIN [Suspect]
     Active Substance: GABAPENTIN
     Dosage: 600 MILLIGRAM/DAY (SELF-TAPERED TO 300 MG BY MOUTH TWICE DAILY)
     Route: 048
  11. CISPLATIN [Concomitant]
     Active Substance: CISPLATIN
     Indication: Lung adenocarcinoma stage III
     Dosage: UNK
     Route: 065
  12. CISPLATIN [Concomitant]
     Active Substance: CISPLATIN
     Indication: Non-small cell lung cancer metastatic
  13. PEMETREXED [Concomitant]
     Active Substance: PEMETREXED
     Indication: Lung adenocarcinoma stage III
     Dosage: UNK
     Route: 065
  14. PEMETREXED [Concomitant]
     Active Substance: PEMETREXED
     Indication: Non-small cell lung cancer metastatic
  15. CARBOPLATIN [Concomitant]
     Active Substance: CARBOPLATIN
     Indication: Lung adenocarcinoma stage III
     Dosage: UNK
     Route: 065
  16. CARBOPLATIN [Concomitant]
     Active Substance: CARBOPLATIN
     Indication: Non-small cell lung cancer metastatic
  17. DURVALUMAB [Concomitant]
     Active Substance: DURVALUMAB
     Indication: Lung adenocarcinoma stage III
     Dosage: UNK
     Route: 065
  18. DURVALUMAB [Concomitant]
     Active Substance: DURVALUMAB
     Indication: Non-small cell lung cancer metastatic
  19. PEMBROLIZUMAB [Concomitant]
     Active Substance: PEMBROLIZUMAB
     Indication: Lung adenocarcinoma stage III
     Dosage: UNK
     Route: 065
  20. PEMBROLIZUMAB [Concomitant]
     Active Substance: PEMBROLIZUMAB
     Indication: Non-small cell lung cancer metastatic
  21. PACLITAXEL [Concomitant]
     Active Substance: PACLITAXEL
     Indication: Lung adenocarcinoma stage III
     Dosage: UNK
     Route: 065
  22. PACLITAXEL [Concomitant]
     Active Substance: PACLITAXEL
     Indication: Non-small cell lung cancer
  23. PACLITAXEL [Concomitant]
     Active Substance: PACLITAXEL
     Indication: Non-small cell lung cancer metastatic

REACTIONS (4)
  - Accidental overdose [Unknown]
  - Medication error [Unknown]
  - Urinary incontinence [Recovered/Resolved]
  - Therapy partial responder [Unknown]
